FAERS Safety Report 24224235 (Version 2)
Quarter: 2024Q3

REPORT INFORMATION
  Report Type: Report from Study
  Country: US (occurrence: US)
  Receive Date: 20240819
  Receipt Date: 20240826
  Transmission Date: 20241017
  Serious: Yes (Other)
  Sender: MYLAN
  Company Number: US-MYLANLABS-2024M1076674

PATIENT
  Sex: Male
  Weight: 99.79 kg

DRUGS (1)
  1. GLATIRAMER ACETATE [Suspect]
     Active Substance: GLATIRAMER ACETATE
     Indication: Multiple sclerosis
     Dosage: 20 MILLIGRAM, QD (DAILY)
     Route: 058
     Dates: end: 202402

REACTIONS (1)
  - Multiple sclerosis relapse [Recovering/Resolving]
